FAERS Safety Report 8837754 (Version 2)
Quarter: 2012Q4

REPORT INFORMATION
  Report Type: 
  Country: IN (occurrence: IN)
  Receive Date: 20121012
  Receipt Date: 20121025
  Transmission Date: 20130627
  Serious: Yes (Life-Threatening, Hospitalization, Other)
  Sender: FDA-Public Use
  Company Number: IN-RANBAXY-2012RR-60948

PATIENT
  Age: 24 Year
  Sex: Female

DRUGS (1)
  1. AMLODIPINE [Suspect]
     Dosage: 56 tablets of 5 mg (total of 280 mg)
     Route: 048

REACTIONS (8)
  - Intentional overdose [Unknown]
  - Suicide attempt [Unknown]
  - Nausea [Unknown]
  - Vomiting [Unknown]
  - Abdominal pain [Unknown]
  - Lung disorder [Recovering/Resolving]
  - Metabolic acidosis [Unknown]
  - Blood glucose increased [Unknown]
